FAERS Safety Report 25666360 (Version 1)
Quarter: 2025Q3

REPORT INFORMATION
  Report Type: Other
  Country: US (occurrence: US)
  Receive Date: 20250811
  Receipt Date: 20250811
  Transmission Date: 20251020
  Serious: No
  Sender: NOVA LABORATORIES LIMITED
  Company Number: US-Nova Laboratories Limited-2182285

PATIENT
  Age: 76 Year
  Sex: Female

DRUGS (5)
  1. XROMI [Suspect]
     Active Substance: HYDROXYUREA
     Indication: Chronic myeloid leukaemia
  2. ASCIMINIB [Suspect]
     Active Substance: ASCIMINIB
  3. ALLOPURINOL [Concomitant]
     Active Substance: ALLOPURINOL
  4. APIXABAN [Concomitant]
     Active Substance: APIXABAN
  5. HEPARIN [Concomitant]
     Active Substance: HEPARIN SODIUM

REACTIONS (1)
  - Chronic myeloid leukaemia [Unknown]
